FAERS Safety Report 6379950-5 (Version None)
Quarter: 2009Q3

REPORT INFORMATION
  Report Type: 
  Country: None (occurrence: None)
  Receive Date: 20090923
  Receipt Date: 20090907
  Transmission Date: 20100115
  Serious: Yes (Hospitalization)
  Sender: FDA-Public Use
  Company Number: 2009AL005946

PATIENT
  Age: 70 Year
  Sex: Male

DRUGS (7)
  1. DIGOXIN [Suspect]
     Dosage: PO
     Route: 048
  2. DIGOXIN [Suspect]
     Indication: ATRIAL FIBRILLATION
     Dosage: ARRHYTHMIA ABSOLUTA
  3. LABETALOL HCL [Concomitant]
  4. AMIODARONE/SINTROM [Concomitant]
  5. TRAMADOL HCL [Concomitant]
  6. METAMIZOLE [Concomitant]
  7. DIAZEPAM [Concomitant]

REACTIONS (3)
  - INJECTION SITE IRRITATION [None]
  - PAIN IN EXTREMITY [None]
  - SENSORY LOSS [None]
